FAERS Safety Report 17199736 (Version 2)
Quarter: 2020Q1

REPORT INFORMATION
  Report Type: Spontaneous
  Country: US (occurrence: US)
  Receive Date: 20191226
  Receipt Date: 20200103
  Transmission Date: 20200409
  Serious: Yes (Other)
  Sender: FDA-Public Use
  Company Number: US-009507513-1912USA010089

PATIENT
  Age: 43 Year
  Sex: Female
  Weight: 108.41 kg

DRUGS (5)
  1. DESVENLAFAXINE. [Concomitant]
     Active Substance: DESVENLAFAXINE
  2. OMEPRAZOLE. [Concomitant]
     Active Substance: OMEPRAZOLE
  3. NEXPLANON [Suspect]
     Active Substance: ETONOGESTREL
     Dosage: 1 ROD EVERY 3 YEARS, LEFT ARM
     Route: 059
     Dates: start: 201702
  4. TOPIRAMATE. [Interacting]
     Active Substance: TOPIRAMATE
  5. AMITIZA [Concomitant]
     Active Substance: LUBIPROSTONE

REACTIONS (5)
  - Labelled drug-drug interaction medication error [Unknown]
  - Weight increased [Not Recovered/Not Resolved]
  - Complication of device removal [Not Recovered/Not Resolved]
  - Device dislocation [Not Recovered/Not Resolved]
  - Device deployment issue [Not Recovered/Not Resolved]
